FAERS Safety Report 12146603 (Version 3)
Quarter: 2016Q2

REPORT INFORMATION
  Report Type: Report from Study
  Country: US (occurrence: US)
  Receive Date: 20160304
  Receipt Date: 20160412
  Transmission Date: 20160815
  Serious: Yes (Hospitalization)
  Sender: FDA-Public Use
  Company Number: US-MYLANLABS-2016M1008952

PATIENT

DRUGS (3)
  1. CLOZAPINE TABLETS, USP [Suspect]
     Active Substance: CLOZAPINE
     Indication: SCHIZOPHRENIA
     Dosage: 100 MG, QD
     Route: 048
  2. CLOZAPINE TABLETS, USP [Suspect]
     Active Substance: CLOZAPINE
     Dosage: 150 MG, QD
     Route: 048
  3. CLOZAPINE TABLETS, USP [Suspect]
     Active Substance: CLOZAPINE
     Dosage: 700 MG, HS

REACTIONS (1)
  - Hospitalisation [Recovered/Resolved]

NARRATIVE: CASE EVENT DATE: 20151106
